FAERS Safety Report 24531167 (Version 1)
Quarter: 2024Q4

REPORT INFORMATION
  Report Type: Spontaneous
  Country: US (occurrence: US)
  Receive Date: 20241022
  Receipt Date: 20241022
  Transmission Date: 20250114
  Serious: Yes (Other)
  Sender: TWI PHARMACEUTICALS
  Company Number: US-ALVOGEN-2023092392

PATIENT
  Age: 30 Year
  Sex: Male
  Weight: 107.5 kg

DRUGS (8)
  1. ZESTRIL [Suspect]
     Active Substance: LISINOPRIL
     Indication: Hypertension
     Dosage: 20 MILLIGRAM
     Route: 048
     Dates: end: 20230817
  2. JYNARQUE [Suspect]
     Active Substance: TOLVAPTAN
     Indication: Polycystic liver disease
     Dosage: IN THE EVENINGEXPIRATION DATE: 31-DEC-2025
     Route: 065
     Dates: start: 20210602, end: 20230713
  3. JYNARQUE [Suspect]
     Active Substance: TOLVAPTAN
     Dosage: IN THE MORNING
     Route: 048
     Dates: start: 20210426, end: 20230713
  4. JYNARQUE [Suspect]
     Active Substance: TOLVAPTAN
     Dosage: IN THE EVENING
     Route: 048
     Dates: start: 20210426, end: 20230713
  5. LIPITOR [Concomitant]
     Active Substance: ATORVASTATIN CALCIUM
     Indication: Product used for unknown indication
     Dosage: UNK
     Route: 065
     Dates: start: 20200727
  6. COREG [Concomitant]
     Active Substance: CARVEDILOL
     Indication: Hypertension
     Dosage: UNK
     Route: 065
     Dates: start: 20230712
  7. FLONASE [Concomitant]
     Active Substance: FLUTICASONE PROPIONATE
     Indication: Product used for unknown indication
     Dosage: UNK
     Route: 065
  8. TRIUMEQ [Concomitant]
     Active Substance: ABACAVIR SULFATE\DOLUTEGRAVIR SODIUM\LAMIVUDINE
     Indication: HIV infection
     Dosage: UNK
     Route: 065
     Dates: start: 20181016

REACTIONS (11)
  - Renal impairment [Unknown]
  - Protein urine present [Unknown]
  - Urine protein/creatinine ratio decreased [Unknown]
  - Blood phosphorus increased [Unknown]
  - Blood alkaline phosphatase decreased [Unknown]
  - Skin warm [Unknown]
  - Glomerular filtration rate decreased [Unknown]
  - Dry skin [Unknown]
  - Blood glucose increased [Unknown]
  - Blood urea increased [Unknown]
  - Blood creatinine increased [Unknown]

NARRATIVE: CASE EVENT DATE: 20221231
